FAERS Safety Report 12440133 (Version 2)
Quarter: 2018Q3

REPORT INFORMATION
  Report Type: Spontaneous
  Country: US (occurrence: US)
  Receive Date: 20160606
  Receipt Date: 20180829
  Transmission Date: 20181010
  Serious: Yes (Hospitalization, Other)
  Sender: FDA-Public Use
  Company Number: US-DSJP-DSU-2015-133293

PATIENT

DRUGS (3)
  1. BENICAR HCT [Suspect]
     Active Substance: HYDROCHLOROTHIAZIDE\OLMESARTAN MEDOXOMIL
     Dosage: 40MG/12.5MG,QD
     Route: 048
     Dates: start: 20151013
  2. BENICAR [Suspect]
     Active Substance: OLMESARTAN MEDOXOMIL
     Indication: ESSENTIAL HYPERTENSION
     Dosage: 40 MG, QD
     Route: 048
  3. BENICAR HCT [Suspect]
     Active Substance: HYDROCHLOROTHIAZIDE\OLMESARTAN MEDOXOMIL
     Indication: HYPERTENSION
     Dosage: 40MG/25 MG, QD
     Route: 048
     Dates: start: 2008, end: 20151013

REACTIONS (7)
  - Gastrointestinal haemorrhage [Recovered/Resolved]
  - Acute kidney injury [Recovering/Resolving]
  - Sprue-like enteropathy [Recovering/Resolving]
  - Emotional distress [Unknown]
  - Inflammatory bowel disease [Recovered/Resolved]
  - Dizziness [Recovered/Resolved]
  - Hiatus hernia [Unknown]

NARRATIVE: CASE EVENT DATE: 2009
